FAERS Safety Report 10933195 (Version 1)
Quarter: 2015Q1

REPORT INFORMATION
  Report Type: Report from Study
  Country: US (occurrence: US)
  Receive Date: 20150320
  Receipt Date: 20150320
  Transmission Date: 20150721
  Serious: No
  Sender: FDA-Public Use
  Company Number: US-ABBVIE-15P-163-1340548-00

PATIENT
  Sex: Male

DRUGS (2)
  1. RIBASPHERE [Concomitant]
     Active Substance: RIBAVIRIN
     Indication: PRODUCT USED FOR UNKNOWN INDICATION
  2. VIEKIRA PAK [Suspect]
     Active Substance: DASABUVIR\OMBITASVIR\PARITAPREVIR\RITONAVIR
     Indication: ACUTE HEPATITIS C
     Dosage: WKLY PK 28^S TAKE 2 PINK TAB DAILY (IN THE AM) AND 1 BEIGE TAB BID (IN AM/IN PM) W/ FOOD
     Route: 048
     Dates: start: 20150124

REACTIONS (4)
  - Pneumonia [Unknown]
  - Sleep disorder [Unknown]
  - Cough [Unknown]
  - Productive cough [Unknown]
